FAERS Safety Report 7529860-2 (Version None)
Quarter: 2011Q2

REPORT INFORMATION
  Report Type: 
  Country: None (occurrence: None)
  Receive Date: 20110520
  Receipt Date: 20110207
  Transmission Date: 20111010
  Serious: Yes (Hospitalization)
  Sender: FDA-Public Use
  Company Number: 2011SP005527

PATIENT
  Age: 33 Year
  Sex: Female

DRUGS (5)
  1. FOLLISTIM AQ [Suspect]
     Indication: IN VITRO FERTILISATION
     Dosage: 150 IU;QD;
  2. CHORIONIC GONADOTROPIN [Suspect]
     Indication: OOCYTE HARVEST
     Dosage: 1000 IU;50 MG; IM
     Route: 030
  3. DEPO LUPRON (LEUPROLIDE ACETATE) [Suspect]
     Indication: HYPOTHALAMO-PITUITARY DISORDER
  4. REPRONEX [Suspect]
     Indication: OVARIAN HYPERSTIMULATION SYNDROME
     Dosage: 75 IU;QD
  5. DESOGEN [Suspect]
     Indication: IN VITRO FERTILISATION
     Dosage: ;PO

REACTIONS (1)
  - MESENTERIC VEIN THROMBOSIS [None]
